FAERS Safety Report 17734245 (Version 1)
Quarter: 2020Q2

REPORT INFORMATION
  Report Type: Spontaneous
  Country: US (occurrence: US)
  Receive Date: 20200501
  Receipt Date: 20200501
  Transmission Date: 20200714
  Serious: Yes (Death, Other)
  Sender: FDA-Public Use
  Company Number: US-SA-2020SA112674

PATIENT
  Sex: Male

DRUGS (1)
  1. RANITIDINE. [Suspect]
     Active Substance: RANITIDINE
     Dosage: TAKE RANITIDINE IN THE HOSPITAL IN JULY AND AUGUST OF 2014
     Route: 065

REACTIONS (1)
  - Oesophageal carcinoma [Fatal]
